FAERS Safety Report 10166945 (Version 1)
Quarter: 2014Q2

REPORT INFORMATION
  Report Type: Spontaneous
  Country: US (occurrence: None)
  Receive Date: 20140509
  Receipt Date: 20140509
  Transmission Date: 20141212
  Serious: Yes (Life-Threatening, Disabling, Other)
  Sender: FDA-Public Use
  Company Number: None

PATIENT
  Age: 82 Year
  Sex: Male
  Weight: 81.65 kg

DRUGS (1)
  1. LEVOFLOXACIN [Suspect]
     Indication: SINUSITIS
     Route: 048
     Dates: start: 20140425, end: 20140428

REACTIONS (12)
  - Malaise [None]
  - Dizziness [None]
  - Gait disturbance [None]
  - Nausea [None]
  - Insomnia [None]
  - Tendon pain [None]
  - Chest pain [None]
  - Nervous system disorder [None]
  - Thinking abnormal [None]
  - Abdominal discomfort [None]
  - Diarrhoea [None]
  - Hypotension [None]
